FAERS Safety Report 7557975-1 (Version None)
Quarter: 2011Q2

REPORT INFORMATION
  Report Type: 
  Country: None (occurrence: None)
  Receive Date: 20110525
  Receipt Date: 20110412
  Transmission Date: 20111010
  Serious: No
  Sender: FDA-Public Use
  Company Number: 323139

PATIENT
  Age: 56 Year
  Sex: Female

DRUGS (2)
  1. AVANDIA [Concomitant]
  2. VICTOZA [Suspect]
     Indication: TYPE 2 DIABETES MELLITUS
     Dosage: 0.6 MG, QD, SUBCUTANEOUS
     Route: 058
     Dates: start: 20110204

REACTIONS (2)
  - DECREASED APPETITE [None]
  - MALAISE [None]
